FAERS Safety Report 14865778 (Version 4)
Quarter: 2019Q4

REPORT INFORMATION
  Report Type: Report from Study
  Country: US (occurrence: US)
  Receive Date: 20180508
  Receipt Date: 20191212
  Transmission Date: 20200122
  Serious: Yes (Other)
  Sender: FDA-Public Use
  Company Number: PHEH2018US017423

PATIENT
  Sex: Female

DRUGS (1)
  1. GILENYA [Suspect]
     Active Substance: FINGOLIMOD HYDROCHLORIDE
     Indication: MULTIPLE SCLEROSIS
     Dosage: 0.5 MG, QD
     Route: 048
     Dates: start: 20171024

REACTIONS (9)
  - Gait disturbance [Not Recovered/Not Resolved]
  - Temperature intolerance [Recovering/Resolving]
  - Peripheral swelling [Recovering/Resolving]
  - Head discomfort [Unknown]
  - Feeling hot [Recovering/Resolving]
  - Multiple sclerosis [Unknown]
  - Fatigue [Recovering/Resolving]
  - Memory impairment [Unknown]
  - Sunburn [Recovering/Resolving]
